FAERS Safety Report 8309671-0 (Version None)
Quarter: 2012Q2

REPORT INFORMATION
  Report Type: 
  Country: None (occurrence: None)
  Receive Date: 20120425
  Receipt Date: 20120416
  Transmission Date: 20120825
  Serious: Yes (Hospitalization)
  Sender: FDA-Public Use
  Company Number: US-US-EMD SERONO, INC.-233992J08USA

PATIENT
  Sex: Female
  Weight: 60 kg

DRUGS (13)
  1. REBIF [Suspect]
     Route: 058
     Dates: start: 20100222
  2. TYLENOL (CAPLET) [Concomitant]
     Indication: PREMEDICATION
     Route: 065
  3. TYLENOL (CAPLET) [Concomitant]
     Indication: MUSCLE TIGHTNESS
  4. NOVOLOG [Concomitant]
     Indication: TYPE 1 DIABETES MELLITUS
     Route: 065
  5. REBIF [Suspect]
     Indication: MULTIPLE SCLEROSIS
     Route: 058
     Dates: start: 20080327, end: 20100127
  6. NEURONTIN [Concomitant]
     Indication: MUSCLE TIGHTNESS
     Route: 065
     Dates: start: 20090317
  7. TYLENOL (CAPLET) [Concomitant]
  8. TYLENOL (CAPLET) [Concomitant]
     Indication: BACK PAIN
  9. NEURONTIN [Concomitant]
     Indication: BACK PAIN
  10. BACLOFEN [Concomitant]
     Indication: MUSCLE SPASMS
     Route: 065
  11. TYLENOL (CAPLET) [Concomitant]
     Route: 065
  12. INSULIN [Concomitant]
     Indication: DIABETES MELLITUS
     Route: 037
     Dates: start: 20080106
  13. INTRAVENOUS STEROID [Concomitant]
     Indication: PRODUCT USED FOR UNKNOWN INDICATION
     Route: 042
     Dates: start: 20080301

REACTIONS (9)
  - DIABETIC KETOACIDOSIS [None]
  - WHITE BLOOD CELL COUNT DECREASED [None]
  - STAPHYLOCOCCAL INFECTION [None]
  - ALOPECIA [None]
  - URINARY INCONTINENCE [None]
  - RED BLOOD CELL COUNT DECREASED [None]
  - TYPE 1 DIABETES MELLITUS [None]
  - LIVER FUNCTION TEST ABNORMAL [None]
  - MULTIPLE SCLEROSIS RELAPSE [None]
